FAERS Safety Report 9202039 (Version 2)
Quarter: 2013Q4

REPORT INFORMATION
  Report Type: Spontaneous
  Country: US (occurrence: US)
  Receive Date: 20130401
  Receipt Date: 20131126
  Transmission Date: 20140711
  Serious: Yes (Hospitalization, Other)
  Sender: FDA-Public Use
  Company Number: US-BAYER-2013-038424

PATIENT
  Sex: Female

DRUGS (8)
  1. YAZ [Suspect]
  2. YASMIN [Suspect]
  3. OCELLA [Suspect]
  4. TYLENOL EXTRA STRENGTH [Concomitant]
     Indication: ABDOMINAL PAIN
  5. FERROUS SULFATE [Concomitant]
  6. BACTRIM [Concomitant]
  7. SIMVASTATIN [Concomitant]
  8. OXYCODONE [Concomitant]

REACTIONS (6)
  - Gallbladder injury [None]
  - Cholecystitis chronic [None]
  - Pancreatitis [None]
  - Injury [None]
  - Pain [None]
  - Pain [None]
